FAERS Safety Report 11267571 (Version 1)
Quarter: 2015Q3

REPORT INFORMATION
  Report Type: Spontaneous
  Country: US (occurrence: US)
  Receive Date: 20150713
  Receipt Date: 20150713
  Transmission Date: 20151125
  Serious: No
  Sender: FDA-Public Use
  Company Number: US-TAKEDA-2013MPI000214

PATIENT

DRUGS (1)
  1. VELCADE [Suspect]
     Active Substance: BORTEZOMIB
     Indication: WALDENSTROM^S MACROGLOBULINAEMIA
     Dosage: 1.3 MG/M2, UNK
     Route: 058
     Dates: start: 20130617, end: 20130801

REACTIONS (3)
  - Injection site rash [Recovered/Resolved]
  - Neuropathy peripheral [Recovering/Resolving]
  - Product use issue [Unknown]

NARRATIVE: CASE EVENT DATE: 20130620
